FAERS Safety Report 15969424 (Version 1)
Quarter: 2019Q1

REPORT INFORMATION
  Report Type: Spontaneous
  Country: US (occurrence: US)
  Receive Date: 20190215
  Receipt Date: 20190215
  Transmission Date: 20190418
  Serious: Yes (Other)
  Sender: FDA-Public Use
  Company Number: US-CELGENEUS-USA-20190203687

PATIENT
  Sex: Male
  Weight: 71.73 kg

DRUGS (4)
  1. REVLIMID [Suspect]
     Active Substance: LENALIDOMIDE
     Dosage: 5MG-25MG
     Route: 048
     Dates: start: 201103
  2. REVLIMID [Suspect]
     Active Substance: LENALIDOMIDE
     Indication: PLASMA CELL MYELOMA
     Dosage: 15 MILLIGRAM
     Route: 048
     Dates: start: 201010
  3. REVLIMID [Suspect]
     Active Substance: LENALIDOMIDE
     Dosage: 10 MILLIGRAM
     Route: 048
     Dates: start: 20180813
  4. REVLIMID [Suspect]
     Active Substance: LENALIDOMIDE
     Dosage: 15MG-50MG
     Route: 048
     Dates: start: 201501

REACTIONS (1)
  - Thrombocytopenia [Not Recovered/Not Resolved]
